FAERS Safety Report 5980645-8 (Version None)
Quarter: 2008Q4

REPORT INFORMATION
  Report Type: 
  Country: None (occurrence: None)
  Receive Date: 20081205
  Receipt Date: 20080227
  Transmission Date: 20090506
  Serious: No
  Sender: FDA-Public Use
  Company Number: A0712078A

PATIENT
  Age: 51 Year
  Sex: Female

DRUGS (6)
  1. COMMIT [Suspect]
  2. MICARDIS HCT [Concomitant]
  3. XANAX [Concomitant]
  4. UNKNOWN MEDICATION [Concomitant]
  5. DIAZEPAM [Concomitant]
  6. SOMA [Concomitant]

REACTIONS (1)
  - INTENTIONAL DRUG MISUSE [None]
